FAERS Safety Report 17349559 (Version 1)
Quarter: 2020Q1

REPORT INFORMATION
  Report Type: Spontaneous
  Country: US (occurrence: US)
  Receive Date: 20200130
  Receipt Date: 20200130
  Transmission Date: 20200409
  Serious: Yes (Other)
  Sender: FDA-Public Use
  Company Number: US-SA-2020SA020869

PATIENT
  Age: 72 Year
  Sex: Female

DRUGS (6)
  1. AMBIEN [Suspect]
     Active Substance: ZOLPIDEM TARTRATE
     Indication: INSOMNIA
     Dosage: UNK
     Route: 065
  2. OTEZLA [Suspect]
     Active Substance: APREMILAST
     Dosage: 60 MG, BID
     Route: 048
  3. MELATONIN [Concomitant]
     Active Substance: MELATONIN
     Indication: INSOMNIA
     Dosage: UNK
     Route: 065
  4. OTEZLA [Suspect]
     Active Substance: APREMILAST
     Indication: PSORIASIS
     Dosage: 60 MG, BID
     Route: 048
     Dates: start: 20190802
  5. OTEZLA [Suspect]
     Active Substance: APREMILAST
     Dosage: 30 MG, QD
     Route: 048
     Dates: start: 201912
  6. METHOTREXATE. [Concomitant]
     Active Substance: METHOTREXATE
     Indication: PLAGUE
     Dosage: UNK
     Route: 065

REACTIONS (3)
  - Palpitations [Not Recovered/Not Resolved]
  - Fatigue [Unknown]
  - Psoriatic arthropathy [Unknown]

NARRATIVE: CASE EVENT DATE: 201908
